FAERS Safety Report 12520670 (Version 1)
Quarter: 2016Q3

REPORT INFORMATION
  Report Type: Spontaneous
  Country: CN (occurrence: CN)
  Receive Date: 20160701
  Receipt Date: 20160701
  Transmission Date: 20161109
  Serious: Yes (Other)
  Sender: FDA-Public Use
  Company Number: CN-BAXTER-2016BAX033660

PATIENT
  Age: 44 Year
  Sex: Female
  Weight: 65 kg

DRUGS (4)
  1. XIYANPING [Suspect]
     Active Substance: HERBALS
     Indication: ASTHMA
     Route: 041
     Dates: start: 20151211, end: 20151211
  2. 0.9% SODIUM CHLORIDE INJECTION [Suspect]
     Active Substance: SODIUM CHLORIDE
     Indication: MEDICATION DILUTION
     Route: 041
     Dates: start: 20151211, end: 20151211
  3. 5% GLUCOSE  INJECTION [Suspect]
     Active Substance: DEXTROSE
     Indication: MEDICATION DILUTION
     Route: 041
     Dates: start: 20151211, end: 20151211
  4. TAILING (CEFAZOLIN SODIUM PENTAHYDRATE) [Suspect]
     Active Substance: CEFAZOLIN SODIUM PENTAHYDRATE
     Indication: LUNG INFECTION
     Route: 041
     Dates: start: 20151211, end: 20151211

REACTIONS (2)
  - Nasal oedema [Recovering/Resolving]
  - Eyelid oedema [Recovering/Resolving]

NARRATIVE: CASE EVENT DATE: 20151211
